FAERS Safety Report 5046144-5 (Version None)
Quarter: 2006Q3

REPORT INFORMATION
  Report Type: 
  Country: None (occurrence: None)
  Receive Date: 20060710
  Receipt Date: 20060629
  Transmission Date: 20061208
  Serious: Yes (Hospitalization)
  Sender: FDA-Public Use
  Company Number: US-JNJFOC-20060700255

PATIENT
  Sex: Female

DRUGS (7)
  1. REMICADE [Suspect]
     Indication: RHEUMATOID ARTHRITIS
     Route: 042
  2. ATENOLOL [Concomitant]
  3. TYLENOL (CAPLET) [Concomitant]
     Dosage: 4 TABS AS NEEDED
  4. FOLIC ACID [Concomitant]
  5. METHOTREXATE [Concomitant]
  6. CELEBREX [Concomitant]
  7. MAALOX FAST BLOCKER [Concomitant]

REACTIONS (2)
  - ANGINA PECTORIS [None]
  - OBSTRUCTION [None]
